FAERS Safety Report 10363607 (Version 2)
Quarter: 2015Q1

REPORT INFORMATION
  Report Type: Not Available
  Country: FR (occurrence: FR)
  Receive Date: 20140805
  Receipt Date: 20150217
  Transmission Date: 20150720
  Serious: Yes (Hospitalization)
  Sender: FDA-Public Use
  Company Number: FR-MUNDIPHARMA DS AND PHARMACOVIGILANCE-GBR-2014-0019783

PATIENT
  Age: 73 Year
  Sex: Male

DRUGS (4)
  1. OXYNORMORO COMPRIME ORODISPERSIBLE 5 MG [Suspect]
     Active Substance: OXYCODONE HYDROCHLORIDE
     Indication: PROCEDURAL PAIN
     Dosage: 5 MG, 6 DF
     Route: 048
     Dates: start: 20140708, end: 20140710
  2. LYRICA [Suspect]
     Active Substance: PREGABALIN
     Indication: NEURALGIA
     Dosage: 50 MG, 2 DF
     Route: 048
     Dates: end: 20140710
  3. ZOPHREN                            /00955301/ [Suspect]
     Active Substance: ONDANSETRON
     Indication: VOMITING
     Dosage: 8 MG, 1 DF DAILY
     Route: 048
     Dates: start: 20140709, end: 20140710
  4. LAROXYL [Suspect]
     Active Substance: AMITRIPTYLINE
     Indication: NEURALGIA
     Dosage: 40 MG/ML, 22 GTT DAILY
     Route: 048
     Dates: start: 20140709, end: 20140710

REACTIONS (5)
  - Myoclonus [Recovered/Resolved]
  - Hallucination, visual [Recovered/Resolved]
  - Loss of consciousness [Recovered/Resolved]
  - Stereotypy [Unknown]
  - Confusional state [Recovered/Resolved]

NARRATIVE: CASE EVENT DATE: 20140709
